FAERS Safety Report 5171311-X (Version None)
Quarter: 2006Q4

REPORT INFORMATION
  Report Type: 
  Country: None (occurrence: None)
  Receive Date: 20061208
  Receipt Date: 20061208
  Transmission Date: 20070319
  Serious: Yes (Life-Threatening, Hospitalization)
  Sender: FDA-Public Use
  Company Number: None

PATIENT
  Age: 50 Year
  Sex: Female
  Weight: 52 kg

DRUGS (4)
  1. LAMICTAL [Suspect]
     Indication: MOOD ALTERED
     Dosage: 100MG   DAILY  PO
     Route: 048
     Dates: start: 20061025, end: 20061202
  2. XANAX [Concomitant]
  3. TRAZODONE HCL [Concomitant]
  4. LORTAB [Concomitant]

REACTIONS (4)
  - CHILLS [None]
  - COUGH [None]
  - HYPOACUSIS [None]
  - RASH [None]
